FAERS Safety Report 5110336-7 (Version None)
Quarter: 2006Q3

REPORT INFORMATION
  Report Type: 
  Country: None (occurrence: None)
  Receive Date: 20060921
  Receipt Date: 20060914
  Transmission Date: 20061208
  Serious: Yes (Death)
  Sender: FDA-Public Use
  Company Number: US-MERCK-0609USA03163

PATIENT
  Age: 60 Year
  Sex: Male

DRUGS (2)
  1. PRIMAXIN [Suspect]
     Indication: PNEUMONIA
     Route: 042
  2. COUMADIN [Concomitant]
     Route: 065

REACTIONS (2)
  - NEOPLASM MALIGNANT [None]
  - THROMBOCYTOPENIA [None]
